FAERS Safety Report 8090133-3 (Version None)
Quarter: 2012Q1

REPORT INFORMATION
  Report Type: 
  Country: None (occurrence: None)
  Receive Date: 20120129
  Receipt Date: 20111018
  Transmission Date: 20120608
  Serious: No
  Sender: FDA-Public Use
  Company Number: US-ABBOTT-11P-163-0866485-00

PATIENT
  Age: 47 Year
  Sex: Female

DRUGS (15)
  1. VALACYCLOVIR [Concomitant]
     Indication: HERPES VIRUS INFECTION
  2. ZOVIRAX [Concomitant]
     Indication: HERPES VIRUS INFECTION
  3. TRAZODONE HCL [Concomitant]
     Indication: DEPRESSION
     Dates: start: 20010101
  4. METHOTREXATE [Concomitant]
     Indication: RHEUMATOID ARTHRITIS
     Dates: start: 20010101
  5. MUPIROCIN [Concomitant]
     Indication: HERPES VIRUS INFECTION
  6. GABAPENTIN [Concomitant]
     Indication: IMPETIGO
  7. VALACYCLOVIR [Concomitant]
     Indication: IMPETIGO
  8. LEVOTHYROXINE SODIUM [Concomitant]
     Indication: HYPOTHYROIDISM
     Dates: start: 19950101
  9. OMEPRAZOLE [Concomitant]
     Indication: PRODUCT USED FOR UNKNOWN INDICATION
     Dates: start: 20030101
  10. MUPIROCIN [Concomitant]
     Indication: IMPETIGO
  11. TRAZODONE HCL [Concomitant]
     Indication: SLEEP DISORDER THERAPY
  12. GABAPENTIN [Concomitant]
     Indication: HERPES VIRUS INFECTION
  13. ZOVIRAX [Concomitant]
     Indication: IMPETIGO
  14. HUMIRA [Suspect]
     Indication: RHEUMATOID ARTHRITIS
     Dates: start: 20070101
  15. CELEXA [Concomitant]
     Indication: DEPRESSION
     Dates: start: 20010101

REACTIONS (5)
  - FATIGUE [None]
  - HEADACHE [None]
  - SINUS HEADACHE [None]
  - SINUSITIS [None]
  - ARTHRALGIA [None]
